FAERS Safety Report 7360192-1 (Version None)
Quarter: 2011Q1

REPORT INFORMATION
  Report Type: 
  Country: None (occurrence: None)
  Receive Date: 20110307
  Receipt Date: 20110225
  Transmission Date: 20110831
  Serious: Yes (Other)
  Sender: FDA-Public Use
  Company Number: 009884

PATIENT
  Sex: Female
  Weight: 69.9 kg

DRUGS (11)
  1. LANTAREL [Concomitant]
  2. CALCILAC /00944201/ [Concomitant]
  3. AMLODIPINE BESYLATE AND VALSARTAN [Concomitant]
  4. FOLSAN [Concomitant]
  5. PREDNISOLONE [Concomitant]
  6. CERTOLIZUMAB PEGOL (CERTOLIZUMAB PEGOL) [Suspect]
     Indication: RHEUMATOID ARTHRITIS
     Dosage: 200 MG 1X/2 WEEKS SUBCUTANEOUS
     Route: 058
     Dates: start: 20091214, end: 20100405
  7. IBUPROFEN [Concomitant]
  8. ALENDRONATE SODIUM [Concomitant]
  9. OMEPRAZOLE [Concomitant]
  10. TAVOR /00273201/ [Concomitant]
  11. DOXAZOSIN [Concomitant]

REACTIONS (3)
  - BRONCHITIS [None]
  - SYNCOPE [None]
  - BLOOD PRESSURE DECREASED [None]
